FAERS Safety Report 7907850-5 (Version None)
Quarter: 2011Q4

REPORT INFORMATION
  Report Type: 
  Country: None (occurrence: None)
  Receive Date: 20111110
  Receipt Date: 20111107
  Transmission Date: 20120403
  Serious: No
  Sender: FDA-Public Use
  Company Number: US-PFIZER INC-2011272332

PATIENT
  Sex: Female
  Weight: 77.098 kg

DRUGS (2)
  1. PRISTIQ [Suspect]
     Indication: DEPRESSION
     Dosage: 50 MG, 1X/DAY
     Route: 048
     Dates: start: 20101008
  2. ESTRADIOL [Concomitant]
     Dosage: UNKNOWN

REACTIONS (2)
  - DYSPEPSIA [None]
  - MEDICATION RESIDUE [None]
